FAERS Safety Report 7704660-9 (Version None)
Quarter: 2011Q3

REPORT INFORMATION
  Report Type: 
  Country: None (occurrence: None)
  Receive Date: 20110823
  Receipt Date: 20110818
  Transmission Date: 20111222
  Serious: Yes (Hospitalization)
  Sender: FDA-Public Use
  Company Number: BE-GLAXOSMITHKLINE-Z0008903A

PATIENT
  Sex: Male
  Weight: 76.5 kg

DRUGS (3)
  1. PERFUSALGAN [Concomitant]
     Indication: FEBRILE NEUTROPENIA
     Dosage: 1G AS REQUIRED
     Route: 042
     Dates: start: 20110409, end: 20110428
  2. TRAMADOL HCL [Concomitant]
     Indication: PHARYNGITIS BACTERIAL
     Dosage: 100G AS REQUIRED
     Route: 042
     Dates: start: 20110410, end: 20110422
  3. CHLORAMBUCIL [Suspect]
     Indication: CHRONIC LYMPHOCYTIC LEUKAEMIA
     Route: 048
     Dates: start: 20110223

REACTIONS (1)
  - PHARYNGITIS BACTERIAL [None]
